FAERS Safety Report 23448879 (Version 4)
Quarter: 2024Q1

REPORT INFORMATION
  Report Type: Spontaneous
  Country: AR (occurrence: AR)
  Receive Date: 20240128
  Receipt Date: 20240326
  Transmission Date: 20240410
  Serious: Yes (Other)
  Sender: FDA-Public Use
  Company Number: AR-002147023-NVSC2022AR242176

PATIENT
  Age: 69 Year
  Sex: Female

DRUGS (17)
  1. DENOSUMAB [Suspect]
     Active Substance: DENOSUMAB
     Indication: Product used for unknown indication
     Dosage: UNK, Q4W
     Route: 065
  2. FULVESTRANT [Suspect]
     Active Substance: FULVESTRANT
     Dosage: UNK, Q4W
     Route: 065
  3. FULVESTRANT [Suspect]
     Active Substance: FULVESTRANT
     Indication: Product used for unknown indication
     Dosage: UNK
     Route: 065
  4. PIQRAY [Suspect]
     Active Substance: ALPELISIB
     Dosage: 150 MG, QD
     Route: 065
     Dates: start: 20221022
  5. PIQRAY [Suspect]
     Active Substance: ALPELISIB
     Dosage: 150 MG
     Route: 065
  6. PIQRAY [Suspect]
     Active Substance: ALPELISIB
     Dosage: 2 DOSAGE FORM (TWO TABLETS)
     Route: 048
     Dates: start: 20220718
  7. PIQRAY [Suspect]
     Active Substance: ALPELISIB
     Indication: Breast cancer metastatic
     Dosage: 300 MG, QD
     Route: 048
     Dates: start: 20220718, end: 20221022
  8. PIQRAY [Suspect]
     Active Substance: ALPELISIB
     Dosage: 300 MG, QD
     Route: 048
     Dates: start: 20220718
  9. PIQRAY [Suspect]
     Active Substance: ALPELISIB
     Dosage: 300 MG, QD
     Route: 065
  10. PIQRAY [Suspect]
     Active Substance: ALPELISIB
     Dosage: UNK (STARTED ON 10 MAR AND STOPPED ON 12 APR)
     Route: 065
  11. PIQRAY [Suspect]
     Active Substance: ALPELISIB
     Dosage: UNK (STARTED ON 22 APR)
     Route: 065
  12. PIQRAY [Suspect]
     Active Substance: ALPELISIB
     Dosage: UNK (STOPPED ON 05 MAR)
     Route: 065
  13. AMOCLAV DUO [Concomitant]
     Indication: Product used for unknown indication
     Dosage: UNK
     Route: 065
  14. Clinadol [Concomitant]
     Indication: Product used for unknown indication
     Dosage: UNK, TID
     Route: 065
  15. CLINDAMYCIN [Concomitant]
     Active Substance: CLINDAMYCIN
     Indication: Product used for unknown indication
     Dosage: UNK, QID
     Route: 065
  16. LEVOTHYROXINE [Concomitant]
     Active Substance: LEVOTHYROXINE\LEVOTHYROXINE SODIUM
     Indication: Product used for unknown indication
     Dosage: 50 MG, QD
     Route: 065
  17. ACETAMINOPHEN [Concomitant]
     Active Substance: ACETAMINOPHEN
     Indication: Product used for unknown indication
     Dosage: UNK
     Route: 065

REACTIONS (40)
  - Angiomyolipoma [Unknown]
  - Osteonecrosis [Unknown]
  - Cataract [Unknown]
  - Infection [Unknown]
  - Peripheral venous disease [Unknown]
  - Pleural thickening [Unknown]
  - Atelectasis [Unknown]
  - Granuloma [Unknown]
  - Synovial cyst [Unknown]
  - Vascular calcification [Unknown]
  - Cyst [Unknown]
  - Intra-abdominal calcification [Unknown]
  - Fluid retention [Unknown]
  - White blood cell count decreased [Unknown]
  - Eosinophil count decreased [Unknown]
  - Blood creatinine decreased [Unknown]
  - Creatinine renal clearance abnormal [Unknown]
  - Blood cholesterol increased [Unknown]
  - Blood homocysteine increased [Unknown]
  - Blood oestrogen increased [Unknown]
  - Blood parathyroid hormone increased [Unknown]
  - Serum serotonin increased [Unknown]
  - Injury [Unknown]
  - Gastrointestinal infection [Unknown]
  - Noninfective gingivitis [Unknown]
  - Gingival recession [Unknown]
  - Gingival bleeding [Unknown]
  - Gingival pain [Unknown]
  - Oral discomfort [Unknown]
  - Exposed bone in jaw [Unknown]
  - Pruritus [Unknown]
  - Dry skin [Unknown]
  - Skin exfoliation [Unknown]
  - Pain [Not Recovered/Not Resolved]
  - Hypersensitivity [Unknown]
  - Blood bilirubin increased [Unknown]
  - Bilirubin conjugated increased [Unknown]
  - Blood bilirubin unconjugated increased [Unknown]
  - Rash [Unknown]
  - Incorrect dose administered [Unknown]

NARRATIVE: CASE EVENT DATE: 20221019
